FAERS Safety Report 7962219 (Version 5)
Quarter: 2013Q3

REPORT INFORMATION
  Report Type: Spontaneous
  Country: GB (occurrence: None)
  Receive Date: 20110511
  Receipt Date: 20130916
  Transmission Date: 20140515
  Serious: Yes (Hospitalization, Other)
  Sender: FDA-Public Use
  Company Number: AUR-APL-2011-01469

PATIENT
  Age: 67 Year
  Sex: Female

DRUGS (4)
  1. ALENDRONATE SODIUM [Suspect]
     Indication: OSTEOPOROSIS
     Dosage: (70 MG, 1 IN 7 D), ORAL
     Route: 048
  2. FOSAMAX (ALENDRONATE SODIUM) [Suspect]
     Indication: OSTEOPOROSIS
     Dosage: UNKNOWN
  3. CALCIUM (CALCIUM) [Concomitant]
  4. VITAMIN D (ERGOCALCIFEROL) [Concomitant]

REACTIONS (4)
  - Femur fracture [None]
  - Arthralgia [None]
  - Exostosis [None]
  - Femur fracture [None]
